FAERS Safety Report 8996567 (Version 2)
Quarter: 2013Q1

REPORT INFORMATION
  Report Type: Spontaneous
  Country: US (occurrence: US)
  Receive Date: 20130104
  Receipt Date: 20130227
  Transmission Date: 20140127
  Serious: Yes (Hospitalization, Other)
  Sender: FDA-Public Use
  Company Number: US-BAYER-2012-136409

PATIENT
  Age: 62 Year
  Sex: Female

DRUGS (2)
  1. BETASERON [Suspect]
     Indication: MULTIPLE SCLEROSIS
     Dosage: 0.25 MG, QOD
     Route: 058
     Dates: start: 1999, end: 20121112
  2. LISINOPRIL [Suspect]
     Indication: EJECTION FRACTION ABNORMAL
     Dosage: UNK
     Dates: start: 201201, end: 201208

REACTIONS (8)
  - Cardiac failure congestive [None]
  - Dyspnoea [None]
  - Ejection fraction abnormal [None]
  - Pulmonary thrombosis [None]
  - Cough [None]
  - Muscle rupture [None]
  - Muscle haemorrhage [None]
  - Blood pressure decreased [None]
